FAERS Safety Report 26090621 (Version 2)
Quarter: 2025Q4

REPORT INFORMATION
  Report Type: Spontaneous
  Country: JP (occurrence: JP)
  Receive Date: 20251126
  Receipt Date: 20251226
  Transmission Date: 20260117
  Serious: Yes (Life-Threatening, Other)
  Sender: MERCK SHARP & DOHME LLC
  Company Number: JP-009507513-2352614

PATIENT
  Age: 74 Year
  Sex: Male

DRUGS (2)
  1. KEYTRUDA [Suspect]
     Active Substance: PEMBROLIZUMAB
     Dosage: IN 2025, 2 COURSES AND DISCONTINUATION OF TREATMENT
     Route: 041
     Dates: start: 202508
  2. PADCEV [Concomitant]
     Active Substance: ENFORTUMAB VEDOTIN-EJFV
     Dosage: IN 2025, DISCONTINUATION OF TREATMENT AFTER 4 COURSES
     Dates: start: 202508

REACTIONS (5)
  - Cardiac failure [Unknown]
  - Malignant neoplasm progression [Unknown]
  - Seizure [Unknown]
  - Depressed level of consciousness [Unknown]
  - Pneumonia [Recovering/Resolving]

NARRATIVE: CASE EVENT DATE: 20250101
